FAERS Safety Report 6496076-0 (Version None)
Quarter: 2009Q4

REPORT INFORMATION
  Report Type: 
  Country: None (occurrence: None)
  Receive Date: 20091214
  Receipt Date: 20090923
  Transmission Date: 20100525
  Serious: No
  Sender: FDA-Public Use
  Company Number: US-BRISTOL-MYERS SQUIBB COMPANY-14791321

PATIENT

DRUGS (1)
  1. ABILIFY [Suspect]
     Indication: ANTIDEPRESSANT THERAPY

REACTIONS (2)
  - ANXIETY [None]
  - WEIGHT INCREASED [None]
